FAERS Safety Report 6407478-2 (Version None)
Quarter: 2009Q4

REPORT INFORMATION
  Report Type: 
  Country: None (occurrence: None)
  Receive Date: 20091015
  Receipt Date: 20091005
  Transmission Date: 20100525
  Serious: Yes (Disabling)
  Sender: FDA-Public Use
  Company Number: GXKR2009GB10968

PATIENT
  Age: 73 Year
  Sex: Male
  Weight: 94 kg

DRUGS (4)
  1. CEFUROXIME [Suspect]
     Indication: FIBULA FRACTURE
     Dosage: INTRAVENOUS`
     Route: 042
     Dates: start: 20090514
  2. CEFUROXIME [Suspect]
     Indication: OPEN FRACTURE
     Dosage: INTRAVENOUS`
     Route: 042
     Dates: start: 20090514
  3. QVAR [Concomitant]
  4. SALBUTAMOL (SALBUTAMOL) [Concomitant]

REACTIONS (1)
  - AGEUSIA [None]
